FAERS Safety Report 7757062-3 (Version None)
Quarter: 2011Q3

REPORT INFORMATION
  Report Type: 
  Country: None (occurrence: None)
  Receive Date: 20110916
  Receipt Date: 20110908
  Transmission Date: 20111222
  Serious: Yes (Hospitalization, Other)
  Sender: FDA-Public Use
  Company Number: US-BAYER-2011-005051

PATIENT
  Age: 17 Year
  Sex: Female
  Weight: 48 kg

DRUGS (5)
  1. NAPROXEN SODIUM AND PSEUDOEPHEDRINE HYDROCHLORIDE [Concomitant]
  2. YAZ [Suspect]
     Dosage: UNK
     Dates: start: 20071221, end: 20080501
  3. OXYCODONE HCL [Concomitant]
  4. IBUPROFEN [Concomitant]
     Dosage: UNK
  5. METHYLPREDNISOLONE [Concomitant]

REACTIONS (7)
  - INJURY [None]
  - EMOTIONAL DISTRESS [None]
  - CHOLECYSTITIS [None]
  - ANXIETY [None]
  - PAIN [None]
  - DEPRESSED MOOD [None]
  - GALLBLADDER DISORDER [None]
